FAERS Safety Report 7110902-3 (Version None)
Quarter: 2010Q4

REPORT INFORMATION
  Report Type: 
  Country: None (occurrence: None)
  Receive Date: 20101118
  Receipt Date: 20100708
  Transmission Date: 20110411
  Serious: Yes (Hospitalization, Other)
  Sender: FDA-Public Use
  Company Number: US-SANOFI-AVENTIS-2010SA027087

PATIENT
  Age: 81 Year
  Sex: Male
  Weight: 73 kg

DRUGS (4)
  1. MULTAQ [Suspect]
     Indication: ATRIAL FLUTTER
     Route: 048
     Dates: start: 20100509, end: 20100509
  2. NEBIVOLOL [Suspect]
     Indication: HEART RATE ABNORMAL
     Route: 065
     Dates: start: 20100509, end: 20100510
  3. NEBIVOLOL [Suspect]
     Indication: ATRIAL FLUTTER
     Route: 065
     Dates: start: 20100509, end: 20100510
  4. CARDIZEM [Suspect]
     Indication: ATRIAL FLUTTER
     Route: 065
     Dates: start: 20090501

REACTIONS (3)
  - CARDIAC ARREST [None]
  - CONVULSION [None]
  - LOSS OF CONSCIOUSNESS [None]
